FAERS Safety Report 15466676 (Version 1)
Quarter: 2018Q4

REPORT INFORMATION
  Report Type: Spontaneous
  Country: AU (occurrence: AU)
  Receive Date: 20181005
  Receipt Date: 20181005
  Transmission Date: 20190204
  Serious: Yes (Hospitalization, Other)
  Sender: FDA-Public Use
  Company Number: AU-IPCA LABORATORIES LIMITED-IPC-2018-AU-002046

PATIENT

DRUGS (1)
  1. METFORMIN [Suspect]
     Active Substance: METFORMIN HYDROCHLORIDE
     Indication: PRODUCT USED FOR UNKNOWN INDICATION
     Dosage: 132 G, SINGLE
     Route: 065

REACTIONS (4)
  - Intentional overdose [Unknown]
  - Lactic acidosis [Recovered/Resolved]
  - Hypotension [Unknown]
  - Anuria [Recovered/Resolved]
